FAERS Safety Report 5029897-1 (Version None)
Quarter: 2006Q2

REPORT INFORMATION
  Report Type: 
  Country: None (occurrence: None)
  Receive Date: 20060504
  Receipt Date: 20051229
  Transmission Date: 20061013
  Serious: No
  Sender: FDA-Public Use
  Company Number: 200513119BWH

PATIENT
  Age: 55 Year
  Sex: Male

DRUGS (6)
  1. LEVITRA [Suspect]
     Indication: ERECTILE DYSFUNCTION
     Dosage: 20 MG, ONCE, ORAL
     Route: 048
     Dates: start: 20051229
  2. FUROSEMIDE [Concomitant]
  3. NILFDIAC CC [Concomitant]
  4. AVANDIA [Concomitant]
  5. DIOVAN [Concomitant]
  6. ZOCOR [Concomitant]

REACTIONS (1)
  - ERECTILE DYSFUNCTION [None]
